FAERS Safety Report 6114131-1 (Version None)
Quarter: 2009Q1

REPORT INFORMATION
  Report Type: 
  Country: None (occurrence: None)
  Receive Date: 20090312
  Receipt Date: 20080411
  Transmission Date: 20090719
  Serious: Yes (Hospitalization)
  Sender: FDA-Public Use
  Company Number: US-ABBOTT-08P-163-0444699-00

PATIENT
  Sex: Male
  Weight: 90.8 kg

DRUGS (1)
  1. DEPAKOTE [Suspect]
     Indication: BIPOLAR I DISORDER
     Route: 048
     Dates: start: 20070401, end: 20080404

REACTIONS (3)
  - BREAST ENLARGEMENT [None]
  - BREAST MASS [None]
  - PSYCHOTIC DISORDER [None]
